FAERS Safety Report 5312951-4 (Version None)
Quarter: 2007Q2

REPORT INFORMATION
  Report Type: 
  Country: None (occurrence: None)
  Receive Date: 20070430
  Receipt Date: 20070418
  Transmission Date: 20071010
  Serious: Yes (Hospitalization, Disabling, Other)
  Sender: FDA-Public Use
  Company Number: US-PFIZER INC-2006122018

PATIENT
  Sex: Male

DRUGS (2)
  1. CELEBREX [Suspect]
     Indication: PAIN
     Route: 048
     Dates: start: 20011001, end: 20011201
  2. VIOXX [Suspect]
     Route: 048
     Dates: start: 20011120, end: 20011225

REACTIONS (1)
  - CEREBROVASCULAR ACCIDENT [None]
